FAERS Safety Report 9538351 (Version 2)
Quarter: 2013Q4

REPORT INFORMATION
  Report Type: Spontaneous
  Country: US (occurrence: US)
  Receive Date: 20130920
  Receipt Date: 20131022
  Transmission Date: 20140711
  Serious: Yes (Other)
  Sender: FDA-Public Use
  Company Number: US-009507513-1309USA005544

PATIENT
  Age: 60 Year
  Sex: Female

DRUGS (1)
  1. VICTRELIS [Suspect]
     Indication: HEPATITIS C
     Dosage: 800 MG, Q8H
     Route: 048
     Dates: start: 20130809, end: 20130909

REACTIONS (7)
  - Abdominal pain upper [Unknown]
  - Affect lability [Unknown]
  - Crying [Unknown]
  - Deafness [Unknown]
  - Weight decreased [Unknown]
  - Insomnia [Unknown]
  - Asthenia [Unknown]
